FAERS Safety Report 4387581-1 (Version None)
Quarter: 2004Q2

REPORT INFORMATION
  Report Type: 
  Country: None (occurrence: None)
  Receive Date: 20040630
  Receipt Date: 20040513
  Transmission Date: 20050107
  Serious: No
  Sender: FDA-Public Use
  Company Number: US-GLAXOSMITHKLINE-A0510759A

PATIENT
  Sex: Female

DRUGS (12)
  1. ADVAIR HFA [Suspect]
     Indication: ASTHMA
     Dosage: 1PUFF TWICE PER DAY
     Route: 055
     Dates: start: 20011201
  2. PREDNISONE [Concomitant]
  3. ANTIBIOTICS [Concomitant]
  4. XOPENEX [Concomitant]
  5. ALBUTEROL [Concomitant]
  6. FLU SHOT [Concomitant]
  7. PNEUMONIA SHOT [Concomitant]
  8. LEVOXYL [Concomitant]
  9. DILANTIN [Concomitant]
  10. ACTONEL [Concomitant]
  11. CALTRATE + D [Concomitant]
  12. ASPIRIN [Concomitant]

REACTIONS (2)
  - HEART RATE IRREGULAR [None]
  - TREMOR [None]
